FAERS Safety Report 8255705-1 (Version None)
Quarter: 2012Q2

REPORT INFORMATION
  Report Type: 
  Country: None (occurrence: None)
  Receive Date: 20120403
  Receipt Date: 20120403
  Transmission Date: 20120825
  Serious: Yes (Hospitalization)
  Sender: FDA-Public Use
  Company Number: None

PATIENT
  Age: 51 Year
  Sex: Female
  Weight: 62.6 kg

DRUGS (5)
  1. SYLATRON [Concomitant]
     Indication: METASTATIC MALIGNANT MELANOMA
     Dosage: 3MCG/KG
     Route: 058
     Dates: start: 20120327, end: 20120327
  2. LACTULOSE [Concomitant]
  3. MORPHINE [Concomitant]
  4. YERVOY [Suspect]
     Indication: METASTATIC MALIGNANT MELANOMA
     Dosage: 3MG/KG
     Route: 042
     Dates: start: 20120327, end: 20120327
  5. MS CONTIN [Concomitant]

REACTIONS (4)
  - SPINAL CORD COMPRESSION [None]
  - METASTATIC MALIGNANT MELANOMA [None]
  - MUSCULAR WEAKNESS [None]
  - PARAESTHESIA [None]
